FAERS Safety Report 16994601 (Version 1)
Quarter: 2019Q4

REPORT INFORMATION
  Report Type: Spontaneous
  Country: FR (occurrence: FR)
  Receive Date: 20191105
  Receipt Date: 20191105
  Transmission Date: 20200122
  Serious: Yes (Death, Other)
  Sender: FDA-Public Use
  Company Number: FR-SA-2019SA302960

PATIENT
  Age: 38 Year
  Sex: Male
  Weight: 66 kg

DRUGS (1)
  1. APIDRA [Suspect]
     Active Substance: INSULIN GLULISINE
     Indication: KETOSIS-PRONE DIABETES MELLITUS
     Dosage: UNKNOWN
     Route: 058
     Dates: start: 20171015, end: 20190921

REACTIONS (4)
  - Accidental overdose [Fatal]
  - Coma [Fatal]
  - Hypoglycaemia [Fatal]
  - Hypoglycaemic encephalopathy [Fatal]

NARRATIVE: CASE EVENT DATE: 20190920
